FAERS Safety Report 16218504 (Version 4)
Quarter: 2019Q2

REPORT INFORMATION
  Report Type: Report from Study
  Country: BR (occurrence: BR)
  Receive Date: 20190419
  Receipt Date: 20190607
  Transmission Date: 20190711
  Serious: Yes (Other)
  Sender: FDA-Public Use
  Company Number: PHHY2019BR057954

PATIENT
  Age: 66 Year
  Sex: Female
  Weight: 75 kg

DRUGS (7)
  1. KISQALI [Suspect]
     Active Substance: RIBOCICLIB
     Dosage: UNK
     Route: 048
  2. ZOMETA [Suspect]
     Active Substance: ZOLEDRONIC ACID
     Indication: METASTASES TO BONE
     Dosage: UNK
     Route: 065
     Dates: start: 2018
  3. ARIMIDEX [Concomitant]
     Active Substance: ANASTROZOLE
     Indication: PRODUCT USED FOR UNKNOWN INDICATION
     Route: 065
  4. KISQALI [Suspect]
     Active Substance: RIBOCICLIB
     Indication: BREAST CANCER
     Dosage: 600 MG, 3 TABLETS PER DAY
     Route: 048
     Dates: start: 20190218
  5. ZOMETA [Suspect]
     Active Substance: ZOLEDRONIC ACID
     Indication: SPINAL CORD NEOPLASM
  6. TAMOXIFEN [Suspect]
     Active Substance: TAMOXIFEN
     Indication: PRODUCT USED FOR UNKNOWN INDICATION
     Route: 065
  7. FASLODEX [Concomitant]
     Active Substance: FULVESTRANT
     Indication: PRODUCT USED FOR UNKNOWN INDICATION
     Route: 065

REACTIONS (33)
  - Breast swelling [Unknown]
  - Toxicity to various agents [Unknown]
  - Feeling abnormal [Unknown]
  - Breast cancer recurrent [Unknown]
  - Dyspnoea [Unknown]
  - Erythema [Unknown]
  - Insomnia [Recovered/Resolved]
  - Malaise [Unknown]
  - Dysphagia [Unknown]
  - Food aversion [Unknown]
  - Peripheral swelling [Not Recovered/Not Resolved]
  - General physical health deterioration [Not Recovered/Not Resolved]
  - Vomiting [Unknown]
  - Limb injury [Unknown]
  - Mouth injury [Unknown]
  - Decreased immune responsiveness [Unknown]
  - Swelling face [Not Recovered/Not Resolved]
  - Interstitial lung disease [Unknown]
  - Speech disorder [Unknown]
  - Decreased appetite [Unknown]
  - Nausea [Unknown]
  - Pneumonitis [Unknown]
  - Skin fissures [Recovering/Resolving]
  - Pain in extremity [Not Recovered/Not Resolved]
  - Diarrhoea [Unknown]
  - Abdominal pain upper [Unknown]
  - Inappropriate schedule of product administration [Unknown]
  - Metastases to spine [Unknown]
  - Metastases to pleura [Unknown]
  - Pleural effusion [Unknown]
  - Fatigue [Not Recovered/Not Resolved]
  - Feeding disorder [Unknown]
  - Weight decreased [Unknown]

NARRATIVE: CASE EVENT DATE: 201806
